FAERS Safety Report 8948088 (Version 2)
Quarter: 2013Q2

REPORT INFORMATION
  Report Type: Spontaneous
  Country: US (occurrence: US)
  Receive Date: 20121204
  Receipt Date: 20130508
  Transmission Date: 20140414
  Serious: Yes (Death, Hospitalization)
  Sender: FDA-Public Use
  Company Number: US-GLAXOSMITHKLINE-A1003088A

PATIENT
  Age: 55 Year
  Sex: Male
  Weight: 65.5 kg

DRUGS (12)
  1. PAROXETINE [Suspect]
     Indication: DEPRESSION
     Dosage: 40MG PER DAY
     Route: 048
     Dates: start: 200511, end: 20120911
  2. ASPIRIN [Concomitant]
  3. IMDUR [Concomitant]
  4. PROTONIX [Concomitant]
  5. PLAVIX [Concomitant]
  6. ATIVAN [Concomitant]
  7. LIPITOR [Concomitant]
  8. CLONAZEPAM [Concomitant]
  9. VITAMIN D3 [Concomitant]
  10. VITAMIN B12 [Concomitant]
  11. MULTIVITAMIN [Concomitant]
  12. UNSPECIFIED MEDICATION [Concomitant]

REACTIONS (2)
  - Cardiac arrest [Fatal]
  - Cardiac disorder [Fatal]
